FAERS Safety Report 4588220-7 (Version None)
Quarter: 2005Q1

REPORT INFORMATION
  Report Type: 
  Country: None (occurrence: None)
  Receive Date: 20050221
  Receipt Date: 20050208
  Transmission Date: 20050727
  Serious: Yes (Other)
  Sender: FDA-Public Use
  Company Number: BR-ROCHE-394825

PATIENT
  Age: 34 Year
  Sex: Female

DRUGS (2)
  1. PEG-INTERFERON A-2A (RO 25-8310) [Suspect]
     Dosage: THE PATIENT RECEIVED TREATMENT FOR SIX MONTHS.
     Route: 065
     Dates: start: 20010315
  2. RIBAVIRIN [Suspect]
     Dosage: THE PATIENT RECEIVED TREATMENT FOR SIX MONTHS.
     Route: 065
     Dates: start: 20010315

REACTIONS (2)
  - COELIAC DISEASE [None]
  - IRON DEFICIENCY ANAEMIA [None]
